FAERS Safety Report 23412516 (Version 2)
Quarter: 2024Q3

REPORT INFORMATION
  Report Type: Spontaneous
  Country: US (occurrence: US)
  Receive Date: 20240117
  Receipt Date: 20240716
  Transmission Date: 20241017
  Serious: No
  Sender: NOVO NORDISK
  Company Number: US-NOVOPROD-1101186

PATIENT
  Sex: Male

DRUGS (1)
  1. OZEMPIC [Suspect]
     Active Substance: SEMAGLUTIDE
     Indication: Product used for unknown indication
     Dosage: 2 MG, QW
     Route: 058

REACTIONS (7)
  - Gait disturbance [Unknown]
  - Influenza like illness [Recovered/Resolved]
  - Illness [Unknown]
  - Visual impairment [Unknown]
  - Retching [Recovered/Resolved]
  - Asthenia [Unknown]
  - Vomiting [Unknown]
